FAERS Safety Report 4517112-4 (Version None)
Quarter: 2004Q4

REPORT INFORMATION
  Report Type: 
  Country: None (occurrence: None)
  Receive Date: 20041130
  Receipt Date: 20041115
  Transmission Date: 20050328
  Serious: Yes (Death, Hospitalization)
  Sender: FDA-Public Use
  Company Number: AU_041008138

PATIENT
  Age: 40 Year
  Sex: Male
  Weight: 168 kg

DRUGS (8)
  1. OLANZAPINE [Suspect]
     Indication: BIPOLAR DISORDER
     Dosage: 30 MG DAY
  2. ASPIRIN [Concomitant]
  3. VALPROATE SODIUM [Concomitant]
  4. SIMVASTATIN [Concomitant]
  5. FRUSEMIDE [Concomitant]
  6. LITHIUM [Concomitant]
  7. THYROXINE (LEVOTHYROXINE SODIUM) [Concomitant]
  8. SPIRONOLACTONE [Concomitant]

REACTIONS (3)
  - LUNG NEOPLASM MALIGNANT [None]
  - PRESCRIBED OVERDOSE [None]
  - RESPIRATORY FAILURE [None]
